FAERS Safety Report 7286644-0 (Version None)
Quarter: 2011Q1

REPORT INFORMATION
  Report Type: 
  Country: None (occurrence: None)
  Receive Date: 20110210
  Receipt Date: 20110203
  Transmission Date: 20110831
  Serious: Yes (Hospitalization)
  Sender: FDA-Public Use
  Company Number: US-BAXTER-2011BH001031

PATIENT
  Sex: Male

DRUGS (1)
  1. FENTANYL CITRATE [Suspect]
     Indication: PRODUCT USED FOR UNKNOWN INDICATION
     Route: 042

REACTIONS (6)
  - PYREXIA [None]
  - THROMBOSIS [None]
  - FLATULENCE [None]
  - PNEUMONIA [None]
  - FULL BLOOD COUNT DECREASED [None]
  - DIVERTICULITIS [None]
